FAERS Safety Report 13813683 (Version 1)
Quarter: 2017Q3

REPORT INFORMATION
  Report Type: Spontaneous
  Country: US (occurrence: US)
  Receive Date: 20170731
  Receipt Date: 20170731
  Transmission Date: 20171127
  Serious: No
  Sender: FDA-Public Use
  Company Number: US-AMGEN-USASP2017111068

PATIENT
  Sex: Female

DRUGS (2)
  1. IVERMECTIN. [Concomitant]
     Active Substance: IVERMECTIN
     Dosage: 3 MG, UNK
  2. ENBREL [Suspect]
     Active Substance: ETANERCEPT
     Indication: PRODUCT USED FOR UNKNOWN INDICATION
     Dosage: 50 MG, QWK
     Route: 058
     Dates: start: 20140128

REACTIONS (3)
  - Oedema peripheral [Not Recovered/Not Resolved]
  - Limb discomfort [Not Recovered/Not Resolved]
  - Spinal disorder [Not Recovered/Not Resolved]
